FAERS Safety Report 13130224 (Version 1)
Quarter: 2017Q1

REPORT INFORMATION
  Report Type: Spontaneous
  Country: US (occurrence: US)
  Receive Date: 20170119
  Receipt Date: 20170119
  Transmission Date: 20170428
  Serious: No
  Sender: FDA-Public Use
  Company Number: US-GLAXOSMITHKLINE-US2017006613

PATIENT
  Age: 90 Year
  Sex: Female

DRUGS (2)
  1. BREO ELLIPTA [Suspect]
     Active Substance: FLUTICASONE FUROATE\VILANTEROL TRIFENATATE
     Indication: PRODUCT USED FOR UNKNOWN INDICATION
     Dosage: 1 PUFF(S), QOD
     Route: 055
     Dates: start: 20170112
  2. SYNTHROID [Concomitant]
     Active Substance: LEVOTHYROXINE SODIUM

REACTIONS (2)
  - Prescribed underdose [Not Recovered/Not Resolved]
  - Dizziness [Recovering/Resolving]

NARRATIVE: CASE EVENT DATE: 20170112
